FAERS Safety Report 4779444-4 (Version None)
Quarter: 2005Q3

REPORT INFORMATION
  Report Type: 
  Country: None (occurrence: None)
  Receive Date: 20050923
  Receipt Date: 20050919
  Transmission Date: 20060218
  Serious: Yes (Hospitalization)
  Sender: FDA-Public Use
  Company Number: 005686

PATIENT
  Sex: 0

DRUGS (2)
  1. REVIA [Suspect]
     Indication: DRUG DETOXIFICATION
     Dosage: 50 MG,
  2. ANAESTHETICS, GENERAL () [Suspect]
     Indication: DRUG DETOXIFICATION

REACTIONS (3)
  - BLOOD GLUCOSE ABNORMAL [None]
  - DIABETIC KETOACIDOSIS [None]
  - DRUG DEPENDENCE [None]
